FAERS Safety Report 6912436-5 (Version None)
Quarter: 2010Q3

REPORT INFORMATION
  Report Type: 
  Country: None (occurrence: None)
  Receive Date: 20100806
  Receipt Date: 20080612
  Transmission Date: 20110219
  Serious: No
  Sender: FDA-Public Use
  Company Number: US-PFIZER INC-2008047267

PATIENT
  Sex: Male
  Weight: 84.1 kg

DRUGS (5)
  1. DETROL LA [Suspect]
     Indication: CYSTITIS INTERSTITIAL
     Dates: start: 20070101
  2. CELEXA [Concomitant]
  3. KLONOPIN [Concomitant]
  4. ADVAIR DISKUS 100/50 [Concomitant]
  5. HYTRIN [Concomitant]

REACTIONS (5)
  - ANXIETY [None]
  - DRY MOUTH [None]
  - INSOMNIA [None]
  - PAIN [None]
  - POLLAKIURIA [None]
